FAERS Safety Report 6791092-3 (Version None)
Quarter: 2010Q2

REPORT INFORMATION
  Report Type: 
  Country: None (occurrence: None)
  Receive Date: 20100624
  Receipt Date: 20100611
  Transmission Date: 20101027
  Serious: Yes (Hospitalization)
  Sender: FDA-Public Use
  Company Number: GB-BAYER-201029557GPV

PATIENT
  Age: 31 Year
  Sex: Female

DRUGS (16)
  1. ALEMTUZUMAB [Suspect]
     Indication: MULTIPLE SCLEROSIS
     Dosage: MONTH 0
     Route: 042
     Dates: start: 20090608, end: 20090612
  2. ALEMTUZUMAB [Suspect]
     Dosage: MONTH 12
     Route: 042
     Dates: start: 20100607
  3. SERTRALINE HCL [Concomitant]
     Dates: start: 20071101
  4. IOPERAMIDE [Concomitant]
     Dates: start: 20080401
  5. LACTULOSE [Concomitant]
     Dates: start: 20080401
  6. PICOLAX [Concomitant]
     Dates: start: 20080401
  7. CYCLIZINE [Concomitant]
     Dates: start: 20080201
  8. OMEPRAZOLE [Concomitant]
     Dates: start: 20080401
  9. SEVERADOL [Concomitant]
     Dates: start: 20091205
  10. NULYTELY [Concomitant]
     Dates: start: 20100104
  11. RESOURCE THINKENING POWDER [Concomitant]
     Dates: start: 20091215
  12. SENNA LIQUID EXTRACT [Concomitant]
     Dates: start: 20100224
  13. DIAZEPAM [Concomitant]
     Dates: start: 20100227
  14. AMITRIPTILINE [Concomitant]
     Dates: start: 20100227
  15. GABAPENTIN [Concomitant]
     Dates: start: 20100301
  16. FENTANYL [Concomitant]
     Dates: start: 20100319

REACTIONS (6)
  - OXYGEN SATURATION DECREASED [None]
  - PYREXIA [None]
  - RESPIRATORY RATE INCREASED [None]
  - TACHYCARDIA [None]
  - URINE OUTPUT DECREASED [None]
  - VOMITING [None]
